FAERS Safety Report 8468899-X (Version None)
Quarter: 2012Q2

REPORT INFORMATION
  Report Type: 
  Country: None (occurrence: None)
  Receive Date: 20120620
  Receipt Date: 20120611
  Transmission Date: 20120825
  Serious: Yes (Other)
  Sender: FDA-Public Use
  Company Number: 2012HGS-003728

PATIENT
  Age: 55 Year
  Sex: Female
  Weight: 69.8539 kg

DRUGS (11)
  1. LEFLUNOMIDE [Concomitant]
  2. ADVIL (IBUPROFEN) (IBUPROFEN) [Concomitant]
  3. QUINACRINE (MEPACRINE HYDROCHLORIDE)(MEPACRINE HYDROCHLORIDE) [Concomitant]
  4. XYZAL (LEVOCETIRIZINE DIHYDROCHLORIDE)(LEVOCETIRIZINE DIHYDROCHLORIDE) [Concomitant]
  5. BENLYSTA [Suspect]
     Indication: SYSTEMIC LUPUS ERYTHEMATOSUS
     Dosage: 1 IN 28 D, INTRAVENOUS DRIP
     Route: 041
     Dates: start: 20111201
  6. ZANTAC [Concomitant]
  7. PREDNISONE [Concomitant]
  8. PLAQUENIL [Concomitant]
  9. IMODIUM (LOPERAMIDE HYDROCHLORIDE)(LOPERAMIDE HYDROCHLORIDE) [Concomitant]
  10. CLARITIN [Concomitant]
  11. MAXALT (RIZATRIPTAN) (RIZATRIPTAN) [Concomitant]

REACTIONS (4)
  - TACHYCARDIA [None]
  - VENTRICULAR EXTRASYSTOLES [None]
  - PALPITATIONS [None]
  - PYREXIA [None]
